FAERS Safety Report 9407036 (Version 2)
Quarter: 2013Q4

REPORT INFORMATION
  Report Type: Report from Study
  Country: FR (occurrence: FR)
  Receive Date: 20130718
  Receipt Date: 20131206
  Transmission Date: 20140711
  Serious: Yes (Hospitalization)
  Sender: FDA-Public Use
  Company Number: FR-ASTELLAS-2013EU005960

PATIENT
  Age: 69 Year
  Sex: Male

DRUGS (8)
  1. PROGRAF [Suspect]
     Indication: IMMUNOSUPPRESSION
     Dosage: UNK
     Route: 065
     Dates: start: 20130613
  2. MECIR LP 0,4 MG [Suspect]
     Dosage: UNK
     Route: 065
     Dates: start: 20130616
  3. CELLCEPT                           /01275102/ [Concomitant]
     Indication: IMMUNOSUPPRESSION
     Dosage: UNK
     Route: 065
     Dates: start: 20130613
  4. CALCIPARINE [Concomitant]
     Dosage: UNK
     Route: 065
     Dates: start: 20130614
  5. CORTANCYL [Concomitant]
     Dosage: UNK
     Route: 065
     Dates: start: 20130614
  6. INEXIUM                            /01479302/ [Concomitant]
     Dosage: UNK
     Route: 065
     Dates: start: 20130614
  7. LASILIX                            /00032601/ [Concomitant]
     Dosage: UNK
     Route: 065
     Dates: start: 20130619
  8. DIFFU K [Concomitant]
     Dosage: UNK
     Route: 065
     Dates: start: 20130620

REACTIONS (2)
  - Graft haemorrhage [Recovered/Resolved]
  - Shock [Recovered/Resolved]
